FAERS Safety Report 5562647-9 (Version None)
Quarter: 2007Q4

REPORT INFORMATION
  Report Type: 
  Country: None (occurrence: None)
  Receive Date: 20071217
  Receipt Date: 20071210
  Transmission Date: 20080405
  Serious: Yes (Hospitalization)
  Sender: FDA-Public Use
  Company Number: FR-BRISTOL-MYERS SQUIBB COMPANY-14000632

PATIENT
  Age: 74 Year
  Sex: Female

DRUGS (14)
  1. CYCLOPHOSPHAMIDE [Suspect]
     Indication: GLOMERULONEPHRITIS
     Dosage: EVERY 2 WEEKS, 6 TIMES 23-OCT-2007 TO UNKNOWN: LOT 7E565
     Route: 040
     Dates: start: 20071009
  2. UROMITEXAN [Suspect]
     Indication: GLOMERULONEPHRITIS
     Route: 042
     Dates: start: 20071009
  3. AMLOR [Concomitant]
  4. VASTAREL [Concomitant]
  5. IMOVANE [Concomitant]
  6. LASIX [Concomitant]
  7. SODIUM BICARBONATE [Concomitant]
  8. ARANESP [Concomitant]
     Route: 058
  9. CORTANCYL [Concomitant]
     Dates: start: 20071001
  10. KARDEGIC [Concomitant]
  11. SPECIAFOLDINE [Concomitant]
  12. KAYEXALATE [Concomitant]
  13. CALCIDIA [Concomitant]
  14. ELISOR [Concomitant]

REACTIONS (4)
  - HYPOTENSION [None]
  - MALAISE [None]
  - NAUSEA [None]
  - PYREXIA [None]
